FAERS Safety Report 4427499-9 (Version None)
Quarter: 2004Q3

REPORT INFORMATION
  Report Type: 
  Country: None (occurrence: None)
  Receive Date: 20040812
  Receipt Date: 20040726
  Transmission Date: 20050211
  Serious: Yes (Hospitalization)
  Sender: FDA-Public Use
  Company Number: ATO-03-0208

PATIENT
  Age: 73 Year
  Sex: Female

DRUGS (5)
  1. TRISENOX [Suspect]
     Indication: MYELODYSPLASTIC SYNDROME
     Dosage: 3.30 MG/KG LOAD; 0.25 MG/KG (5 DOSE LOAD: 2X/WK)
     Route: 042
     Dates: start: 20030505, end: 20030512
  2. METOCLOPRAMIDE [Concomitant]
  3. FUROSEMIDE [Concomitant]
  4. CEFTAZIDIME SODIUM [Concomitant]
  5. LEXOMIL (BROMAZEPAM) [Concomitant]

REACTIONS (9)
  - ASTHENIA [None]
  - CONTUSION [None]
  - DYSPNOEA [None]
  - FACE INJURY [None]
  - FALL [None]
  - NAUSEA [None]
  - PYREXIA [None]
  - TACHYCARDIA [None]
  - VERTIGO [None]
